FAERS Safety Report 18531538 (Version 1)
Quarter: 2020Q4

REPORT INFORMATION
  Report Type: Report from Study
  Country: US (occurrence: US)
  Receive Date: 20201122
  Receipt Date: 20201122
  Transmission Date: 20210114
  Serious: Yes (Death)
  Sender: FDA-Public Use
  Company Number: US-BAUSCH-BL-2020-010883

PATIENT
  Age: 67 Year
  Sex: Female

DRUGS (1)
  1. XIFAXAN [Suspect]
     Active Substance: RIFAXIMIN
     Indication: LIVER DISORDER
     Dosage: STOPPED ON AN UNKNOWN DATE FEW MONTHS AGO
     Route: 048

REACTIONS (3)
  - Therapy interrupted [Unknown]
  - Death [Fatal]
  - Insurance issue [Unknown]

NARRATIVE: CASE EVENT DATE: 20201114
